FAERS Safety Report 17834344 (Version 4)
Quarter: 2020Q3

REPORT INFORMATION
  Report Type: Spontaneous
  Country: US (occurrence: US)
  Receive Date: 20200528
  Receipt Date: 20200814
  Transmission Date: 20201103
  Serious: No
  Sender: FDA-Public Use
  Company Number: US-SA-2020SA137950

PATIENT

DRUGS (6)
  1. PROZAC [Concomitant]
     Active Substance: FLUOXETINE HYDROCHLORIDE
  2. HYDROCHLOROTHIAZIDE. [Concomitant]
     Active Substance: HYDROCHLOROTHIAZIDE
  3. LITHIUM CARBONATE. [Concomitant]
     Active Substance: LITHIUM CARBONATE
  4. OLANZAPINE. [Concomitant]
     Active Substance: OLANZAPINE
  5. AUBAGIO [Suspect]
     Active Substance: TERIFLUNOMIDE
     Indication: MULTIPLE SCLEROSIS
     Dosage: 14 MG, QD
     Route: 048
     Dates: start: 20200129
  6. MODAFINIL. [Concomitant]
     Active Substance: MODAFINIL

REACTIONS (8)
  - Diarrhoea [Unknown]
  - Hypoaesthesia [Unknown]
  - Alopecia [Unknown]
  - Gastrointestinal disorder [Unknown]
  - Cognitive disorder [Unknown]
  - Paraesthesia [Unknown]
  - Headache [Unknown]
  - Bladder disorder [Unknown]

NARRATIVE: CASE EVENT DATE: 2020
